FAERS Safety Report 7525940-6 (Version None)
Quarter: 2011Q2

REPORT INFORMATION
  Report Type: 
  Country: None (occurrence: None)
  Receive Date: 20110606
  Receipt Date: 20110530
  Transmission Date: 20111010
  Serious: Yes (Death, Life-Threatening, Other)
  Sender: FDA-Public Use
  Company Number: JP-CEPHALON-2011001059

PATIENT
  Sex: Female
  Weight: 40 kg

DRUGS (14)
  1. BUDESONIDE [Concomitant]
     Dates: end: 20110311
  2. SULBACTAM + AMPICILINA [Concomitant]
     Dates: start: 20110311, end: 20110314
  3. SODIUM BICARBONATE [Concomitant]
     Dates: start: 20110315, end: 20110317
  4. SENNOSIDE [Concomitant]
     Dates: end: 20110311
  5. BENDAMUSTINE HCL [Suspect]
     Route: 041
     Dates: end: 20110223
  6. MAGNESIUM OXIDE [Concomitant]
     Dates: end: 20110311
  7. CEFEPIME HYDROCHLORIDE [Concomitant]
     Dates: start: 20110315, end: 20110317
  8. BENDAMUSTINE HCL [Suspect]
     Indication: NON-HODGKIN'S LYMPHOMA RECURRENT
     Route: 041
     Dates: start: 20110201, end: 20110202
  9. TOLUBUTEROL [Concomitant]
     Dates: end: 20110311
  10. SULFAMETHOXAZOLE AND TRIMETHOPRIM [Concomitant]
     Dates: end: 20110317
  11. ZOLPIDEM TARTRATE [Concomitant]
     Dates: end: 20110311
  12. OMEPRAZOLE SODIUM [Concomitant]
     Dates: start: 20110312, end: 20110317
  13. PREDNISOLONE [Concomitant]
     Dates: end: 20110310
  14. GRANISETRON HCL [Concomitant]
     Dates: start: 20110201, end: 20110222

REACTIONS (8)
  - BLOOD SODIUM INCREASED [None]
  - NEUTROPHIL COUNT DECREASED [None]
  - ANAEMIA [None]
  - BLOOD POTASSIUM INCREASED [None]
  - OBLITERATIVE BRONCHIOLITIS [None]
  - INFECTION [None]
  - BLOOD UREA INCREASED [None]
  - WHITE BLOOD CELL COUNT DECREASED [None]
